FAERS Safety Report 15413671 (Version 2)
Quarter: 2018Q3

REPORT INFORMATION
  Report Type: Other
  Country: US (occurrence: US)
  Receive Date: 20180921
  Receipt Date: 20180928
  Transmission Date: 20181010
  Serious: Yes (Other)
  Sender: FDA-Public Use
  Company Number: US-ACORDA-ACO_153985_2018

PATIENT
  Age: 41 Year
  Sex: Female
  Weight: 45.35 kg

DRUGS (3)
  1. AMPYRA [Suspect]
     Active Substance: DALFAMPRIDINE
     Indication: MULTIPLE SCLEROSIS
  2. TYSABRI [Concomitant]
     Active Substance: NATALIZUMAB
     Indication: PRODUCT USED FOR UNKNOWN INDICATION
     Dosage: UNK
     Route: 065
  3. AMPYRA [Suspect]
     Active Substance: DALFAMPRIDINE
     Indication: GAIT DISTURBANCE
     Dosage: 10 MG, BID (EVERY 12 HOURS)
     Route: 048
     Dates: start: 20180913, end: 20180914

REACTIONS (11)
  - Lip swelling [Recovered/Resolved]
  - Pallor [Recovered/Resolved]
  - Feeling abnormal [Recovered/Resolved]
  - Pain [Recovered/Resolved]
  - Swelling face [Recovered/Resolved]
  - Hypoaesthesia [Recovered/Resolved]
  - Crying [Recovered/Resolved]
  - Fatigue [Recovered/Resolved]
  - Paraesthesia [Recovered/Resolved]
  - Feeling hot [Recovered/Resolved]
  - Abdominal pain upper [Recovered/Resolved]

NARRATIVE: CASE EVENT DATE: 20180914
